FAERS Safety Report 18982582 (Version 2)
Quarter: 2021Q1

REPORT INFORMATION
  Report Type: Report from Study
  Country: US (occurrence: US)
  Receive Date: 20210308
  Receipt Date: 20210317
  Transmission Date: 20210420
  Serious: Yes (Death, Other)
  Sender: FDA-Public Use
  Company Number: US-PFIZER INC-2021232309

PATIENT
  Age: 48 Year
  Sex: Female

DRUGS (21)
  1. GEMCITABINE HYDROCHLORIDE. [Suspect]
     Active Substance: GEMCITABINE HYDROCHLORIDE
     Indication: PERIPHERAL T-CELL LYMPHOMA UNSPECIFIED
     Dosage: UNK
  2. MELPHALAN. [Suspect]
     Active Substance: MELPHALAN
     Indication: PERIPHERAL T-CELL LYMPHOMA UNSPECIFIED
     Dosage: 140 MG/M2, CYCLIC(DAY ?1)
  3. ROMIDEPSIN. [Suspect]
     Active Substance: ROMIDEPSIN
     Indication: PERIPHERAL T-CELL LYMPHOMA UNSPECIFIED
     Dosage: UNK
  4. MELPHALAN. [Suspect]
     Active Substance: MELPHALAN
     Dosage: UNK
  5. OXALIPLATIN. [Suspect]
     Active Substance: OXALIPLATIN
     Indication: PERIPHERAL T-CELL LYMPHOMA UNSPECIFIED
     Dosage: UNK
  6. FLUDARABINE PHOSPHATE. [Suspect]
     Active Substance: FLUDARABINE PHOSPHATE
     Indication: PERIPHERAL T-CELL LYMPHOMA UNSPECIFIED
     Dosage: UNK
  7. CYCLOPHOSPHAMIDE. [Suspect]
     Active Substance: CYCLOPHOSPHAMIDE
     Indication: PERIPHERAL T-CELL LYMPHOMA UNSPECIFIED
     Dosage: UNK, CYCLIC
  8. CYTARABINE. [Suspect]
     Active Substance: CYTARABINE
     Indication: PERIPHERAL T-CELL LYMPHOMA UNSPECIFIED
     Dosage: 200 MG/M2, 2X/DAY (?5 TO ?2 DAY)
  9. DEXAMETHASONE. [Suspect]
     Active Substance: DEXAMETHASONE
     Indication: PERIPHERAL T-CELL LYMPHOMA UNSPECIFIED
     Dosage: UNK, CYCLIC
  10. ETOPOSIDE. [Suspect]
     Active Substance: ETOPOSIDE
     Dosage: UNK
  11. THYMOGLOBULIN [Concomitant]
     Active Substance: LAPINE T-LYMPHOCYTE IMMUNE GLOBULIN
     Dosage: 4.5 MG/KG
  12. DOXORUBICIN HCL [Suspect]
     Active Substance: DOXORUBICIN HYDROCHLORIDE
     Indication: PERIPHERAL T-CELL LYMPHOMA UNSPECIFIED
     Dosage: UNK, CYCLIC
  13. RITUXIMAB. [Suspect]
     Active Substance: RITUXIMAB
     Indication: PERIPHERAL T-CELL LYMPHOMA UNSPECIFIED
     Dosage: 375 MG/M2, CYCLIC(ON DAYS +1 AND +8)
  14. ETOPOSIDE. [Suspect]
     Active Substance: ETOPOSIDE
     Indication: PERIPHERAL T-CELL LYMPHOMA UNSPECIFIED
     Dosage: 100 MG/M2, 2X/DAY(?5 TO ?2 DAY)
  15. IFOSFAMIDE. [Suspect]
     Active Substance: IFOSFAMIDE
     Indication: PERIPHERAL T-CELL LYMPHOMA UNSPECIFIED
     Dosage: UNK, CYCLIC
  16. CARMUSTINE. [Suspect]
     Active Substance: CARMUSTINE
     Indication: PERIPHERAL T-CELL LYMPHOMA UNSPECIFIED
     Dosage: 300 MG/M2, CYCLIC(DAY?6)
  17. BENDAMUSTINE [Suspect]
     Active Substance: BENDAMUSTINE
     Indication: PERIPHERAL T-CELL LYMPHOMA UNSPECIFIED
     Dosage: 200 MG, DAILY
  18. VINCRISTINE SULFATE. [Suspect]
     Active Substance: VINCRISTINE SULFATE
     Indication: PERIPHERAL T-CELL LYMPHOMA UNSPECIFIED
     Dosage: UNK, CYCLIC
  19. ETOPOSIDE. [Suspect]
     Active Substance: ETOPOSIDE
     Dosage: UNK
  20. PREDNISONE. [Suspect]
     Active Substance: PREDNISONE
     Indication: PERIPHERAL T-CELL LYMPHOMA UNSPECIFIED
     Dosage: UNK, CYCLIC
  21. CISPLATIN. [Suspect]
     Active Substance: CISPLATIN
     Indication: PERIPHERAL T-CELL LYMPHOMA UNSPECIFIED
     Dosage: UNK, CYCLIC

REACTIONS (3)
  - Second primary malignancy [Fatal]
  - Epstein-Barr virus infection reactivation [Unknown]
  - Post transplant lymphoproliferative disorder [Fatal]
